FAERS Safety Report 7834044 (Version 2)
Quarter: 2012Q4

REPORT INFORMATION
  Report Type: 
  Country: US (occurrence: VE)
  Receive Date: 20110228
  Receipt Date: 20121221
  Transmission Date: 20130627
  Serious: Yes (Other)
  Sender: FDA-Public Use
  Company Number: PHHY2011VE10200

PATIENT
  Age: 49 Year
  Sex: Female

DRUGS (7)
  1. FORADIL [Suspect]
     Indication: ASTHMA
     Dosage: 1 DF, BID
     Dates: start: 2009
  2. FORADIL [Suspect]
     Dosage: 1 DF, (one inhalation daily)
  3. MIFLONIDE [Suspect]
     Indication: ASTHMA
     Dosage: 1 DF, (twice a day)
     Dates: start: 2009
  4. MIFLONIDE [Suspect]
     Dosage: 1 DF, inhalation
     Dates: start: 2010
  5. XOLAIR [Suspect]
     Indication: ASTHMA
     Dosage: 300 mg, QMO
     Route: 058
     Dates: start: 201010, end: 2011
  6. VOLTAREN [Concomitant]
  7. DIPROSPAN [Concomitant]

REACTIONS (2)
  - Wrist fracture [Recovered/Resolved]
  - Tachycardia [Recovered/Resolved]
